FAERS Safety Report 8857244 (Version 2)
Quarter: 2013Q2

REPORT INFORMATION
  Report Type: Spontaneous
  Country: US (occurrence: US)
  Receive Date: 20121024
  Receipt Date: 20130422
  Transmission Date: 20140414
  Serious: No
  Sender: FDA-Public Use
  Company Number: US-ASTRAZENECA-2012SE79634

PATIENT
  Age: 49 Year
  Sex: Female

DRUGS (1)
  1. NEXIUM [Suspect]
     Route: 048

REACTIONS (6)
  - Discomfort [Unknown]
  - Dyspepsia [Unknown]
  - Vomiting [Unknown]
  - Insomnia [Unknown]
  - Malaise [Unknown]
  - Drug dose omission [Unknown]
